FAERS Safety Report 8010608-2 (Version None)
Quarter: 2011Q4

REPORT INFORMATION
  Report Type: 
  Country: None (occurrence: None)
  Receive Date: 20111228
  Receipt Date: 20111221
  Transmission Date: 20120403
  Serious: Yes (Other)
  Sender: FDA-Public Use
  Company Number: PHHY2011BR111680

PATIENT
  Sex: Male
  Weight: 88 kg

DRUGS (4)
  1. DIOVAN [Suspect]
     Indication: HYPERTENSION
     Dosage: 320 MG, DAILY
     Route: 048
  2. METHYLDOPA [Concomitant]
     Indication: HYPERTENSION
     Dosage: 500 MG, Q8H
  3. ASPIRIN [Concomitant]
     Indication: THROMBOSIS PROPHYLAXIS
     Dosage: 100 MG, DAILY
     Route: 048
  4. HYDROCHLOROTHIAZIDE [Concomitant]
     Indication: DIURETIC THERAPY
     Dosage: 1 DF, DAILY

REACTIONS (2)
  - SLEEP APNOEA SYNDROME [None]
  - CONVULSION [None]
